FAERS Safety Report 5324882-4 (Version None)
Quarter: 2007Q2

REPORT INFORMATION
  Report Type: 
  Country: None (occurrence: None)
  Receive Date: 20070515
  Receipt Date: 20070509
  Transmission Date: 20071010
  Serious: Yes (Death)
  Sender: FDA-Public Use
  Company Number: DE-BAYER-200712616GDS

PATIENT
  Sex: Male

DRUGS (2)
  1. ACTIMAX [Suspect]
     Indication: BRONCHITIS CHRONIC
     Dosage: UNIT DOSE: 400 MG
     Route: 048
     Dates: start: 20061001
  2. ZITHROMAX [Concomitant]
     Indication: BRONCHITIS CHRONIC
     Route: 065

REACTIONS (1)
  - SUDDEN CARDIAC DEATH [None]
